FAERS Safety Report 4582730-4 (Version None)
Quarter: 2005Q1

REPORT INFORMATION
  Report Type: 
  Country: None (occurrence: None)
  Receive Date: 20050125
  Receipt Date: 20040412
  Transmission Date: 20050727
  Serious: Yes (Hospitalization)
  Sender: FDA-Public Use
  Company Number: PHEH2004US04132

PATIENT
  Age: 63 Year
  Sex: Male

DRUGS (5)
  1. SANDOSTATIN LAR [Suspect]
     Indication: ACROMEGALY
     Dosage: 20 MG, QMO, INJECTION NOS
     Dates: start: 20030407
  2. VIOXX [Concomitant]
  3. SPIRONOLACTONE [Concomitant]
  4. PROSCAR [Concomitant]
  5. AXID [Concomitant]

REACTIONS (4)
  - CHOLECYSTECTOMY [None]
  - CHOLELITHIASIS [None]
  - CHOLESTASIS [None]
  - PANCREATITIS [None]
